FAERS Safety Report 10736586 (Version 6)
Quarter: 2016Q4

REPORT INFORMATION
  Report Type: Spontaneous
  Country: US (occurrence: US)
  Receive Date: 20150126
  Receipt Date: 20161107
  Transmission Date: 20170206
  Serious: No
  Sender: FDA-Public Use
  Company Number: US-PFIZER INC-2015032038

PATIENT
  Age: 52 Year
  Sex: Male

DRUGS (23)
  1. VITAMIN B COMPLEX [Concomitant]
     Active Substance: CYANOCOBALAMIN\DEXPANTHENOL\NIACINAMIDE\PYRIDOXINE HYDROCHLORIDE\RIBOFLAVIN 5^-PHOSPHATE SODIUM\THIAMINE HYDROCHLORIDE\VITAMIN B COMPLEX
     Dosage: UNK, DAILY (AS DIRECTED)
     Route: 048
     Dates: start: 20130304
  2. LYRICA [Suspect]
     Active Substance: PREGABALIN
     Dosage: 100 MG, 3X/DAY (MAX DOSE 300 MG/24 HOURS)
     Route: 048
     Dates: start: 20131001
  3. LACTULOSE. [Concomitant]
     Active Substance: LACTULOSE
     Indication: CONSTIPATION
     Dosage: UNK, AS NEEDED (AS DIRECTED)
     Dates: start: 20151202
  4. AMLODIPINE BESYLATE. [Concomitant]
     Active Substance: AMLODIPINE BESYLATE
     Dosage: 10 MG, 1X/DAY
     Route: 048
     Dates: start: 20150529
  5. NOVOLOG [Concomitant]
     Active Substance: INSULIN ASPART
     Dosage: 20 IU, 3X/DAY  (AS DIRECTED)
     Route: 058
     Dates: start: 20141224
  6. LANTUS [Concomitant]
     Active Substance: INSULIN GLARGINE
     Dosage: 25 IU, UNK (AS DIRECTED)
     Route: 058
     Dates: start: 20150227
  7. LAC-HYDRIN [Concomitant]
     Active Substance: AMMONIUM LACTATE
     Dosage: UNK UNK, 2X/DAY (1 APPLICATION TO AFFECTED AREA EXTERNALLY)
     Dates: start: 20150312
  8. PERCOCET [Concomitant]
     Active Substance: ACETAMINOPHEN\OXYCODONE HYDROCHLORIDE
     Dosage: 1 DF, AS NEEDED (10-325 MG) (EVERY 8 HRS)
     Route: 048
  9. CLARITIN-D 12 HOUR [Concomitant]
     Active Substance: LORATADINE\PSEUDOEPHEDRINE SULFATE
     Dosage: 1 DF, AS NEEDED (ONCE A DAY) (LORATADINE: 10 MG, PSEUDOEPHEDRINE SULFATE: 240 MG)
     Route: 048
     Dates: start: 20150210
  10. VOLTAREN [Concomitant]
     Active Substance: DICLOFENAC SODIUM
     Dosage: UNK UNK, 1X/DAY (1 % GEL) (AS DIRECTED)
     Route: 062
  11. BENAZEPRIL HCL [Concomitant]
     Active Substance: BENAZEPRIL HYDROCHLORIDE
     Dosage: 20 MG, 1X/DAY
     Route: 048
     Dates: start: 20141208
  12. OXYCODONE AND ACETAMINOPHEN [Concomitant]
     Active Substance: ACETAMINOPHEN\OXYCODONE HYDROCHLORIDE
     Dosage: 1 DF, AS NEEDED (OXYCODONE HYDROCHLORIDE: 10MG, PARACETAMOL: 325MG) (EVERY 6 HRS)
     Route: 048
  13. PROCTOZONE HC [Concomitant]
     Active Substance: HYDROCORTISONE
     Dosage: UNK, 2X/DAY (2.5 % CREAM, 1 APPLICATION TO AFFECTED AREA)
     Route: 054
     Dates: start: 20130910
  14. ZOSTAVAX [Concomitant]
     Active Substance: VARICELLA-ZOSTER VIRUS STRAIN OKA/MERCK LIVE ANTIGEN
     Dosage: UNK, DAILY (19400 UNT/0.65ML SOLUTION RECONSTITUTED, SIG: AS DIRECTED)
     Route: 058
     Dates: start: 20130924
  15. FLEXERIL [Concomitant]
     Active Substance: CYCLOBENZAPRINE HYDROCHLORIDE
     Dosage: 10 MG, 2X/DAY
     Route: 048
     Dates: start: 20141110
  16. EMLA [Concomitant]
     Active Substance: LIDOCAINE\PRILOCAINE
     Dosage: 60 G, 3X/DAY (2.5-2.5 %) (AS DIRECTED EXTERNALLY)
  17. VITAMIN D [Concomitant]
     Active Substance: CHOLECALCIFEROL
     Dosage: 2000 IU, DAILY (AS DIRECTED)
     Route: 048
     Dates: start: 20150415
  18. FOLIC ACID. [Concomitant]
     Active Substance: FOLIC ACID
     Dosage: 1 MG, 1X/DAY
     Route: 048
     Dates: start: 20130903
  19. ASPIRIN. [Concomitant]
     Active Substance: ASPIRIN
     Dosage: 81 MG, 1X/DAY
     Route: 048
     Dates: start: 20130115
  20. VIAGRA [Concomitant]
     Active Substance: SILDENAFIL CITRATE
     Dosage: UNK
  21. CRESTOR [Concomitant]
     Active Substance: ROSUVASTATIN CALCIUM
     Dosage: 10 MG, 1X/DAY
     Route: 048
     Dates: start: 20150901
  22. OMEPRAZOLE. [Concomitant]
     Active Substance: OMEPRAZOLE
     Dosage: 40 MG, 1X/DAY
     Route: 048
     Dates: start: 20141217
  23. FLONASE [Concomitant]
     Active Substance: FLUTICASONE PROPIONATE
     Dosage: UNK, 1X/DAY (50 MCG/ACT SUSPENSION,1 PUFF IN EACH NOSTRIL)
     Route: 045
     Dates: start: 20150609

REACTIONS (3)
  - Neuropathy peripheral [Unknown]
  - Nasopharyngitis [Unknown]
  - Pain [Unknown]
